FAERS Safety Report 4714391-5 (Version None)
Quarter: 2005Q3

REPORT INFORMATION
  Report Type: 
  Country: None (occurrence: None)
  Receive Date: 20050714
  Receipt Date: 20050321
  Transmission Date: 20060218
  Serious: Yes (Death)
  Sender: FDA-Public Use
  Company Number: GR-GLAXOSMITHKLINE-B0375787A

PATIENT

DRUGS (3)
  1. MELPHALAN [Suspect]
     Indication: MULTIPLE MYELOMA
     Dosage: 8MGM2 PER DAY
     Route: 048
  2. DEXAMETHASONE [Suspect]
     Dosage: 12MGM2 PER DAY
     Route: 048
  3. THALIDOMIDE [Suspect]
     Dosage: 300MG PER DAY
     Route: 048

REACTIONS (1)
  - INFECTION [None]
